FAERS Safety Report 6655800-4 (Version None)
Quarter: 2010Q1

REPORT INFORMATION
  Report Type: 
  Country: None (occurrence: None)
  Receive Date: 20100317
  Receipt Date: 20100104
  Transmission Date: 20100710
  Serious: No
  Sender: FDA-Public Use
  Company Number: DSA_42286_2010

PATIENT
  Sex: Male

DRUGS (5)
  1. XENAZINE [Suspect]
     Indication: CEREBRAL PALSY
     Dosage: 25 MG TID ORAL, 25 MG BID ORAL
     Route: 048
     Dates: start: 20091105
  2. XENAZINE [Suspect]
     Indication: CEREBRAL PALSY
     Dosage: 25 MG TID ORAL, 25 MG BID ORAL
     Route: 048
     Dates: start: 20100101
  3. PROZAC [Suspect]
     Indication: DEPRESSION
     Dosage: 40 MG QD ORAL
     Route: 048
  4. MULTI-VITAMIN [Concomitant]
  5. THIAMINE [Concomitant]

REACTIONS (3)
  - ANXIETY [None]
  - DEPRESSION [None]
  - DISTURBANCE IN ATTENTION [None]
